FAERS Safety Report 16266476 (Version 2)
Quarter: 2019Q3

REPORT INFORMATION
  Report Type: Spontaneous
  Country: US (occurrence: US)
  Receive Date: 20190502
  Receipt Date: 20190706
  Transmission Date: 20191004
  Serious: Yes (Other)
  Sender: FDA-Public Use
  Company Number: US-MYLANLABS-2019M1040191

PATIENT
  Sex: Female
  Weight: 59 kg

DRUGS (1)
  1. CLONIDINE TRANSDERMAL SYSTEM [Suspect]
     Active Substance: CLONIDINE
     Indication: BLOOD PRESSURE MANAGEMENT
     Dosage: 0.1 MILLIGRAM, QD

REACTIONS (3)
  - Hypertension [Unknown]
  - Drug ineffective [Unknown]
  - Product label issue [Unknown]
